FAERS Safety Report 5409879-8 (Version None)
Quarter: 2007Q3

REPORT INFORMATION
  Report Type: 
  Country: None (occurrence: None)
  Receive Date: 20070809
  Receipt Date: 20070730
  Transmission Date: 20080115
  Serious: Yes (Other)
  Sender: FDA-Public Use
  Company Number: US-PFIZER INC-2007063251

PATIENT
  Sex: Female
  Weight: 68.636 kg

DRUGS (2)
  1. CORTEF [Suspect]
     Indication: ADRENAL DISORDER
     Dates: start: 20070701, end: 20070715
  2. ALL OTHER THERAPEUTIC PRODUCTS [Concomitant]

REACTIONS (6)
  - ABDOMINAL PAIN UPPER [None]
  - CARDIAC FAILURE [None]
  - CONFUSIONAL STATE [None]
  - GASTRITIS [None]
  - MOBILITY DECREASED [None]
  - THYROID FUNCTION TEST ABNORMAL [None]
